APPROVED DRUG PRODUCT: DEFERIPRONE
Active Ingredient: DEFERIPRONE
Strength: 500MG
Dosage Form/Route: TABLET;ORAL
Application: A213239 | Product #001 | TE Code: AB
Applicant: HIKMA PHARMACEUTICALS USA INC
Approved: Mar 29, 2021 | RLD: No | RS: No | Type: RX